FAERS Safety Report 18353552 (Version 4)
Quarter: 2021Q3

REPORT INFORMATION
  Report Type: Other
  Country: JP (occurrence: JP)
  Receive Date: 20201007
  Receipt Date: 20210728
  Transmission Date: 20211014
  Serious: Yes (Death, Other)
  Sender: FDA-Public Use
  Company Number: JP-ROCHE-2686788

PATIENT
  Age: 84 Year
  Sex: Female
  Weight: 36 kg

DRUGS (3)
  1. ENTRECTINIB [Suspect]
     Active Substance: ENTRECTINIB
     Indication: NON-SMALL CELL LUNG CANCER
     Route: 048
     Dates: start: 20200914, end: 20200928
  2. ENTRECTINIB [Suspect]
     Active Substance: ENTRECTINIB
     Dosage: ON 14/JAN/2021, SHE RECEIVED MOST RECENT DOSE OF ENTRECTINIB.
     Route: 048
     Dates: start: 20201204
  3. ENTRECTINIB [Suspect]
     Active Substance: ENTRECTINIB
     Dosage: ON 03/DEC/2020, SHE RECEIVED MOST RECENT DOSE OF ENTRECTINIB.
     Route: 048
     Dates: start: 20200929

REACTIONS (4)
  - Cognitive disorder [Recovering/Resolving]
  - Pleural effusion [Recovering/Resolving]
  - Renal impairment [Recovering/Resolving]
  - Gait disturbance [Recovering/Resolving]

NARRATIVE: CASE EVENT DATE: 20200917
